FAERS Safety Report 19117455 (Version 2)
Quarter: 2021Q2

REPORT INFORMATION
  Report Type: Spontaneous
  Country: LB (occurrence: LB)
  Receive Date: 20210409
  Receipt Date: 20210423
  Transmission Date: 20210717
  Serious: Yes (Death, Hospitalization, Other)
  Sender: FDA-Public Use
  Company Number: LB-SA-2021SA118258

PATIENT
  Age: 2 Year
  Sex: Male
  Weight: 5 kg

DRUGS (7)
  1. VITAMIN D [VITAMIN D NOS] [Concomitant]
     Active Substance: VITAMIN D NOS
     Dosage: UNK
  2. RAVOTRIL [Concomitant]
     Active Substance: CLONAZEPAM
     Indication: MUSCLE SPASMS
     Dosage: 1/2 DF (TABLET), TID
     Route: 048
  3. IRON [Concomitant]
     Active Substance: IRON
  4. LIORESAL [Concomitant]
     Active Substance: BACLOFEN
     Indication: MUSCLE SPASMS
     Dosage: 1 DF, BID
     Route: 048
  5. CEREZYME [Suspect]
     Active Substance: IMIGLUCERASE
     Indication: GROWTH RETARDATION
     Dosage: 60 IU/KG, Q15D
     Route: 042
     Dates: start: 20191223, end: 20210309
  6. ROCEPHINE [Concomitant]
     Active Substance: CEFTRIAXONE SODIUM
     Indication: MUSCLE SPASMS
     Dosage: 0.5 DF 1/2 TABLET, 3 TIMES DAILY, TID
     Route: 048
  7. CEREZYME [Suspect]
     Active Substance: IMIGLUCERASE
     Indication: PSYCHOMOTOR RETARDATION

REACTIONS (4)
  - Obstructive airways disorder [Fatal]
  - Pneumonia [Fatal]
  - Cardiac arrest [Fatal]
  - Device use issue [Unknown]

NARRATIVE: CASE EVENT DATE: 202103
